FAERS Safety Report 5684004-7 (Version None)
Quarter: 2008Q1

REPORT INFORMATION
  Report Type: 
  Country: None (occurrence: None)
  Receive Date: 20080328
  Receipt Date: 20080320
  Transmission Date: 20080703
  Serious: Yes (Hospitalization)
  Sender: FDA-Public Use
  Company Number: DE-ABBOTT-08P-062-0443479-00

PATIENT
  Age: 57 Year
  Sex: Male

DRUGS (2)
  1. HUMIRA [Suspect]
     Indication: RHEUMATOID ARTHRITIS
     Route: 058
     Dates: end: 20080101
  2. PREDNISOLONE [Concomitant]
     Indication: RHEUMATOID ARTHRITIS

REACTIONS (1)
  - PANCREATITIS [None]
